FAERS Safety Report 6410965-4 (Version None)
Quarter: 2009Q4

REPORT INFORMATION
  Report Type: 
  Country: None (occurrence: None)
  Receive Date: 20091020
  Receipt Date: 20091020
  Transmission Date: 20100525
  Serious: Yes (Other)
  Sender: FDA-Public Use
  Company Number: None

PATIENT
  Sex: Male
  Weight: 70.3075 kg

DRUGS (1)
  1. RESTASIS [Suspect]
     Indication: DRY EYE
     Dosage: 1 AMPULE PER EYE TWICE DAILY OPHTHALMIC 5 TOTAL DOSES PER EYE
     Route: 047
     Dates: start: 20090922, end: 20090924

REACTIONS (1)
  - VERTIGO [None]
